FAERS Safety Report 12483218 (Version 3)
Quarter: 2016Q3

REPORT INFORMATION
  Report Type: Spontaneous
  Country: US (occurrence: US)
  Receive Date: 20160621
  Receipt Date: 20160901
  Transmission Date: 20161109
  Serious: Yes (Death, Hospitalization)
  Sender: FDA-Public Use
  Company Number: US-RELYPSA-RLY2016000989

PATIENT
  Age: 93 Year
  Sex: Female

DRUGS (13)
  1. BUMEX [Concomitant]
     Active Substance: BUMETANIDE
  2. GLYBURIDE. [Concomitant]
     Active Substance: GLYBURIDE
  3. NEPHROCAPS                         /01801401/ [Concomitant]
  4. OMEPRAZOLE. [Concomitant]
     Active Substance: OMEPRAZOLE
  5. TRAMADOL HCL [Concomitant]
     Active Substance: TRAMADOL HYDROCHLORIDE
  6. DOCUSATE SODIUM. [Concomitant]
     Active Substance: DOCUSATE SODIUM
  7. VELTASSA [Suspect]
     Active Substance: PATIROMER
     Indication: HYPERKALAEMIA
     Dosage: 8.4 G, QD
     Route: 048
     Dates: start: 20160527
  8. GENERLAC [Concomitant]
     Active Substance: LACTULOSE
  9. HYDRALAZINE HCL [Concomitant]
     Active Substance: HYDRALAZINE HYDROCHLORIDE
  10. ALPRAZOLAM. [Concomitant]
     Active Substance: ALPRAZOLAM
  11. METOPROLOL SUCCINATE. [Concomitant]
     Active Substance: METOPROLOL SUCCINATE
  12. TERAZOSIN HCL [Concomitant]
     Active Substance: TERAZOSIN HYDROCHLORIDE
  13. ZEMPLAR [Concomitant]
     Active Substance: PARICALCITOL

REACTIONS (3)
  - Cardiac arrest [Fatal]
  - Thrombosis [Unknown]
  - Azotaemia [Unknown]

NARRATIVE: CASE EVENT DATE: 2016
